FAERS Safety Report 8392136-8 (Version None)
Quarter: 2012Q2

REPORT INFORMATION
  Report Type: 
  Country: None (occurrence: None)
  Receive Date: 20120529
  Receipt Date: 20120521
  Transmission Date: 20120825
  Serious: Yes (Hospitalization, Other)
  Sender: FDA-Public Use
  Company Number: FR-ROCHE-1071025

PATIENT
  Age: 89 Year
  Sex: Female

DRUGS (8)
  1. LANSOPRAZOLE [Concomitant]
  2. CLONAZEPAM [Suspect]
     Indication: AGITATION
  3. FUROSEMIDE [Concomitant]
  4. CEFTRIAXONE [Concomitant]
  5. HYDROCORTISONE [Concomitant]
  6. NOVORAPID [Concomitant]
  7. ACETAMINOPHEN [Concomitant]
  8. CORDARONE [Concomitant]

REACTIONS (4)
  - HYPOGLYCAEMIA [None]
  - SEPSIS [None]
  - MIOSIS [None]
  - HYPOTENSION [None]
